FAERS Safety Report 11317675 (Version 1)
Quarter: 2015Q3

REPORT INFORMATION
  Report Type: Spontaneous
  Country: FR (occurrence: FR)
  Receive Date: 20150728
  Receipt Date: 20150728
  Transmission Date: 20151125
  Serious: Yes (Hospitalization)
  Sender: FDA-Public Use
  Company Number: FR-SA-2015SA108983

PATIENT
  Age: 79 Year
  Sex: Male

DRUGS (3)
  1. CRIZOTINIB [Concomitant]
     Active Substance: CRIZOTINIB
     Indication: GLIOBLASTOMA
     Dates: start: 20150528
  2. CRIZOTINIB [Concomitant]
     Active Substance: CRIZOTINIB
     Indication: GLIOBLASTOMA
     Route: 048
     Dates: start: 20150526
  3. LOVENOX [Suspect]
     Active Substance: ENOXAPARIN SODIUM
     Indication: THROMBOSIS
     Route: 058
     Dates: start: 20150520, end: 20150528

REACTIONS (3)
  - Hemiparesis [Not Recovered/Not Resolved]
  - Fall [Not Recovered/Not Resolved]
  - Tumour haemorrhage [Not Recovered/Not Resolved]

NARRATIVE: CASE EVENT DATE: 20150528
